FAERS Safety Report 4560135-X (Version None)
Quarter: 2005Q1

REPORT INFORMATION
  Report Type: 
  Country: None (occurrence: None)
  Receive Date: 20050120
  Receipt Date: 20050120
  Transmission Date: 20050727
  Serious: No
  Sender: FDA-Public Use
  Company Number: None

PATIENT
  Age: 77 Year

DRUGS (1)
  1. MIRTAZAPINE GENERIC 15 MG [Suspect]
     Indication: DEPRESSION
     Dosage: ONCE @ BEDTIME
     Dates: start: 20010101

REACTIONS (4)
  - DRUG INTOLERANCE [None]
  - DYSGEUSIA [None]
  - PHARMACEUTICAL PRODUCT COMPLAINT [None]
  - VOMITING [None]
